FAERS Safety Report 6747625-6 (Version None)
Quarter: 2010Q2

REPORT INFORMATION
  Report Type: 
  Country: None (occurrence: None)
  Receive Date: 20100528
  Receipt Date: 20100520
  Transmission Date: 20101027
  Serious: Yes (Hospitalization, Other)
  Sender: FDA-Public Use
  Company Number: PHHY2010NL13451

PATIENT
  Sex: Female

DRUGS (8)
  1. ZOMETA [Suspect]
     Dosage: 4 MG/5 ML
     Route: 042
     Dates: start: 20100206
  2. ZOMETA [Suspect]
     Dosage: UNK
     Route: 042
     Dates: start: 20100304
  3. ZOMETA [Suspect]
     Dosage: UNK
     Route: 042
     Dates: start: 20100330
  4. ZOMETA [Suspect]
     Dosage: UNK
     Route: 042
     Dates: start: 20100427, end: 20100519
  5. CALCIUM CARBONATE [Concomitant]
  6. VITAMIN D [Concomitant]
  7. FASODEX [Concomitant]
     Dosage: 1 DF, QMO
     Route: 030
  8. PANADOL [Concomitant]

REACTIONS (10)
  - CARBOHYDRATE ANTIGEN 125 INCREASED [None]
  - CHEST DISCOMFORT [None]
  - DECREASED APPETITE [None]
  - DIARRHOEA [None]
  - DYSPNOEA [None]
  - FATIGUE [None]
  - METASTASIS [None]
  - PULMONARY EMBOLISM [None]
  - SPINAL OPERATION [None]
  - VOMITING [None]
